FAERS Safety Report 4788133-1 (Version None)
Quarter: 2005Q4

REPORT INFORMATION
  Report Type: 
  Country: None (occurrence: None)
  Receive Date: 20051005
  Receipt Date: 20050922
  Transmission Date: 20060501
  Serious: Yes (Hospitalization)
  Sender: FDA-Public Use
  Company Number: US-JNJFOC-20041200293

PATIENT
  Sex: Male
  Weight: 58.97 kg

DRUGS (31)
  1. DURAGESIC-100 [Suspect]
     Route: 062
  2. DURAGESIC-100 [Suspect]
     Route: 062
  3. DURAGESIC-100 [Suspect]
     Route: 062
  4. DURAGESIC-100 [Suspect]
     Route: 062
  5. DURAGESIC-100 [Suspect]
     Route: 062
  6. DURAGESIC-100 [Suspect]
     Route: 062
  7. DURAGESIC-100 [Suspect]
     Route: 062
  8. DURAGESIC-100 [Suspect]
     Route: 062
  9. DURAGESIC-100 [Suspect]
     Route: 062
  10. PROCRIT [Suspect]
     Indication: DRUG USE FOR UNKNOWN INDICATION
     Route: 058
  11. DILANTIN [Suspect]
     Route: 048
  12. DILANTIN [Suspect]
     Route: 048
  13. DILANTIN [Suspect]
     Route: 048
  14. DILANTIN [Suspect]
     Indication: CONVULSION PROPHYLAXIS
     Route: 048
  15. MORPHINE SULFATE [Suspect]
     Indication: PAIN
  16. NEURONTIN [Concomitant]
  17. PROTONIX [Concomitant]
  18. XANAX [Concomitant]
     Route: 048
  19. XANAX [Concomitant]
     Indication: ANXIETY
     Route: 048
  20. PAXIL CR [Concomitant]
  21. FIORICET #3 [Concomitant]
  22. FIORICET #3 [Concomitant]
  23. FIORICET #3 [Concomitant]
     Indication: PAIN
  24. VINCRISTINE [Concomitant]
     Indication: CHEMOTHERAPY
     Dosage: 2 MG/2 ML
     Route: 042
  25. PROMETHAZINE [Concomitant]
  26. AMBIEN [Concomitant]
  27. ALLEGRA [Concomitant]
  28. METOCLOPROMIDE [Concomitant]
  29. POLYETHYLENE GLYCOL [Concomitant]
  30. TEMAZEPAM [Concomitant]
  31. MOXIFLOXACIN HCL [Concomitant]

REACTIONS (19)
  - ABDOMINAL PAIN LOWER [None]
  - ANTICONVULSANT TOXICITY [None]
  - ANXIETY [None]
  - ASTHENIA [None]
  - COLD SWEAT [None]
  - CONSTIPATION [None]
  - CONVULSION [None]
  - HYPOAESTHESIA [None]
  - INAPPROPRIATE ANTIDIURETIC HORMONE SECRETION [None]
  - INSOMNIA [None]
  - MUSCLE SPASMS [None]
  - MUSCULOSKELETAL STIFFNESS [None]
  - NAUSEA [None]
  - NERVOUSNESS [None]
  - PAIN IN EXTREMITY [None]
  - PARAESTHESIA [None]
  - SINUSITIS [None]
  - TREMOR [None]
  - URINARY HESITATION [None]
